FAERS Safety Report 16163740 (Version 1)
Quarter: 2019Q2

REPORT INFORMATION
  Report Type: Spontaneous
  Country: CN (occurrence: CN)
  Receive Date: 20190405
  Receipt Date: 20190405
  Transmission Date: 20190711
  Serious: Yes (Other)
  Sender: FDA-Public Use
  Company Number: CN-PFIZER INC-2019138271

PATIENT
  Age: 85 Year
  Sex: Male
  Weight: 63 kg

DRUGS (2)
  1. LIPITOR [Suspect]
     Active Substance: ATORVASTATIN CALCIUM
     Indication: LIPIDS ABNORMAL
     Dosage: 20 MG, 1X/DAY (BEFORE SLEEP)
     Route: 048
     Dates: start: 20190206
  2. LIPITOR [Suspect]
     Active Substance: ATORVASTATIN CALCIUM
     Indication: ARTERIOSCLEROSIS

REACTIONS (2)
  - Drug-induced liver injury [Recovered/Resolved]
  - Transaminases abnormal [Recovered/Resolved]

NARRATIVE: CASE EVENT DATE: 20190218
